FAERS Safety Report 17809973 (Version 1)
Quarter: 2020Q2

REPORT INFORMATION
  Report Type: Spontaneous
  Country: US (occurrence: US)
  Receive Date: 20200521
  Receipt Date: 20200521
  Transmission Date: 20200714
  Serious: No
  Sender: FDA-Public Use
  Company Number: US-ASTRAZENECA-2020SE62777

PATIENT
  Sex: Female

DRUGS (13)
  1. RHINOCORT [Suspect]
     Active Substance: BUDESONIDE
     Indication: HYPERSENSITIVITY
     Route: 045
  2. SINGULAIR [Concomitant]
     Active Substance: MONTELUKAST SODIUM
  3. BREO ELLIPTA [Concomitant]
     Active Substance: FLUTICASONE FUROATE\VILANTEROL TRIFENATATE
  4. KLOR CON M10 ER [Concomitant]
  5. ZYRTEC [Concomitant]
     Active Substance: CETIRIZINE HYDROCHLORIDE
  6. PULMICORT TURBUHALER [Suspect]
     Active Substance: BUDESONIDE
     Route: 055
  7. EPINEPHRINE. [Concomitant]
     Active Substance: EPINEPHRINE
  8. XOPENEX HFA [Concomitant]
     Active Substance: LEVALBUTEROL TARTRATE
  9. ASMANEX [Concomitant]
     Active Substance: MOMETASONE FUROATE
  10. AZELASTIN [Concomitant]
  11. SYNTHROID [Concomitant]
     Active Substance: LEVOTHYROXINE SODIUM
  12. CADUET [Concomitant]
     Active Substance: AMLODIPINE BESYLATE\ATORVASTATIN CALCIUM
  13. MAXAIR MDI [Concomitant]

REACTIONS (16)
  - Sinusitis [Not Recovered/Not Resolved]
  - Vitamin D deficiency [Unknown]
  - Hypokalaemia [Recovering/Resolving]
  - Blood cholesterol increased [Recovering/Resolving]
  - Epistaxis [Recovered/Resolved]
  - Seasonal allergy [Recovering/Resolving]
  - Eye swelling [Recovering/Resolving]
  - Oral disorder [Recovered/Resolved]
  - Arthralgia [Recovered/Resolved]
  - Hypertension [Recovering/Resolving]
  - Cough [Recovering/Resolving]
  - Ocular hyperaemia [Recovering/Resolving]
  - Productive cough [Unknown]
  - Blood immunoglobulin E increased [Unknown]
  - Nephrolithiasis [Recovered/Resolved]
  - Pleurisy [Recovered/Resolved]
